FAERS Safety Report 5069823-2 (Version None)
Quarter: 2006Q3

REPORT INFORMATION
  Report Type: 
  Country: None (occurrence: None)
  Receive Date: 20060803
  Receipt Date: 20060627
  Transmission Date: 20061208
  Serious: Yes (Hospitalization)
  Sender: FDA-Public Use
  Company Number: US-SANOFI-SYNTHELABO-A03200604192

PATIENT
  Sex: Female

DRUGS (4)
  1. DEMEROL [Suspect]
     Indication: COLITIS
     Dosage: UNK
     Route: 041
  2. VERAPAMIL [Concomitant]
     Dosage: UNK
     Route: 048
  3. FLEXERIL [Concomitant]
     Dosage: UNK
     Route: 048
  4. FELDENE [Concomitant]
     Dosage: UNK
     Route: 048

REACTIONS (3)
  - DELIRIUM [None]
  - MYOCLONUS [None]
  - RENAL FAILURE ACUTE [None]
